FAERS Safety Report 10080262 (Version 2)
Quarter: 2014Q2

REPORT INFORMATION
  Report Type: Spontaneous
  Country: IT (occurrence: IT)
  Receive Date: 20140415
  Receipt Date: 20140415
  Transmission Date: 20141212
  Serious: Yes (Hospitalization)
  Sender: FDA-Public Use
  Company Number: PHHY2014IT016698

PATIENT
  Age: 88 Year
  Sex: Female

DRUGS (7)
  1. REPAGLINIDE [Suspect]
     Indication: DIABETES MELLITUS
     Dosage: 8 MG, QD
     Route: 048
     Dates: start: 20131115, end: 20131219
  2. SOLDESAM [Concomitant]
     Indication: OSTEOARTHRITIS
     Dosage: 16 DRP, UNK
     Route: 048
     Dates: start: 20130901, end: 20131201
  3. AROMASIN [Concomitant]
     Indication: BREAST CANCER
     Dosage: 25 MG, UNK
     Route: 048
     Dates: start: 20120101, end: 20131219
  4. LASIX [Concomitant]
     Indication: HYPERTENSION
     Dosage: 25 MG, UNK
     Route: 048
  5. TAVOR (LORAZEPAM) [Concomitant]
     Dosage: 2.5 MG, UNK
     Dates: start: 20120626, end: 20131219
  6. KANRENOL [Concomitant]
     Dosage: 25 MG, UNK
  7. CITALOPRAM [Concomitant]
     Indication: DYSTHYMIC DISORDER
     Dates: start: 20120626, end: 20131219

REACTIONS (3)
  - Hypoglycaemia [Recovered/Resolved]
  - Sopor [Recovered/Resolved]
  - Drug prescribing error [Recovered/Resolved]
